FAERS Safety Report 8277490-X (Version None)
Quarter: 2012Q2

REPORT INFORMATION
  Report Type: 
  Country: None (occurrence: None)
  Receive Date: 20120412
  Receipt Date: 20120412
  Transmission Date: 20120825
  Serious: Yes (Death, Other)
  Sender: FDA-Public Use
  Company Number: PHHY2011US109067

PATIENT

DRUGS (4)
  1. PEMOLINE [Suspect]
     Dosage: UNK UKN, UNK
  2. METHYLPHENIDATE [Suspect]
     Dosage: UNK UKN, UNK
  3. AMPHETAMINES [Suspect]
     Dosage: UNK UKN, UNK
  4. ATOMOXETINE HCL [Suspect]
     Dosage: UNK UKN, UNK

REACTIONS (3)
  - SUDDEN CARDIAC DEATH [None]
  - MYOCARDIAL INFARCTION [None]
  - CEREBROVASCULAR ACCIDENT [None]
